FAERS Safety Report 8462589-5 (Version None)
Quarter: 2012Q2

REPORT INFORMATION
  Report Type: 
  Country: None (occurrence: None)
  Receive Date: 20120625
  Receipt Date: 20120504
  Transmission Date: 20120825
  Serious: No
  Sender: FDA-Public Use
  Company Number: US-BAUSCH-2012BL002008

PATIENT
  Age: 29 Year
  Sex: Female

DRUGS (15)
  1. BESIVANCE [Suspect]
     Indication: POSTOPERATIVE CARE
     Route: 047
     Dates: start: 20110119, end: 20110119
  2. BESIVANCE [Suspect]
     Route: 047
     Dates: start: 20110101, end: 20110101
  3. BESIVANCE [Suspect]
     Route: 047
     Dates: start: 20110101, end: 20110101
  4. VESICARE [Concomitant]
  5. BESIVANCE [Suspect]
     Indication: PHOTOREFRACTIVE KERATECTOMY
     Route: 047
     Dates: start: 20110119, end: 20110119
  6. CLARITIN /USA/ [Concomitant]
  7. FML FORTE [Concomitant]
     Indication: POSTOPERATIVE CARE
     Route: 047
     Dates: start: 20120119
  8. BESIVANCE [Suspect]
     Indication: OFF LABEL USE
     Route: 047
     Dates: start: 20110119, end: 20110119
  9. BROMFENAC [Concomitant]
     Indication: PHOTOREFRACTIVE KERATECTOMY
     Route: 047
     Dates: start: 20120119, end: 20120119
  10. BESIVANCE [Suspect]
     Route: 047
     Dates: start: 20110101, end: 20110101
  11. MULTI-VITAMINS [Concomitant]
  12. DROSPIRENONE AND ETHINYL ESTRADIOL [Concomitant]
  13. BROMFENAC [Concomitant]
     Indication: POSTOPERATIVE CARE
     Route: 047
     Dates: start: 20120119, end: 20120101
  14. PRED FORTE [Concomitant]
     Indication: PHOTOREFRACTIVE KERATECTOMY
     Route: 047
     Dates: start: 20120119, end: 20120119
  15. AZITHROMYCIN [Concomitant]
     Indication: PREOPERATIVE CARE
     Route: 047
     Dates: start: 20110101, end: 20110101

REACTIONS (3)
  - CORNEAL DISORDER [None]
  - IMPAIRED HEALING [None]
  - EYE IRRITATION [None]
